FAERS Safety Report 19780682 (Version 2)
Quarter: 2021Q3

REPORT INFORMATION
  Report Type: Report from Study
  Country: GB (occurrence: GB)
  Receive Date: 20210902
  Receipt Date: 20210920
  Transmission Date: 20211014
  Serious: Yes (Hospitalization)
  Sender: FDA-Public Use
  Company Number: GB-SAMSUNG BIOEPIS-SB-2021-20832

PATIENT
  Age: 42 Year
  Sex: Male

DRUGS (4)
  1. IMRALDI [Suspect]
     Active Substance: ADALIMUMAB
     Indication: COLITIS ULCERATIVE
     Dosage: GIVEN IN HOSPITAL
     Route: 058
     Dates: start: 20210811
  2. IMRALDI [Suspect]
     Active Substance: ADALIMUMAB
     Route: 058
     Dates: start: 20210825
  3. IMRALDI [Suspect]
     Active Substance: ADALIMUMAB
     Dosage: WEEK 0
     Route: 058
  4. IMRALDI [Suspect]
     Active Substance: ADALIMUMAB
     Dosage: WEEK 2
     Route: 058

REACTIONS (5)
  - Injection site bruising [Unknown]
  - Erythema [Unknown]
  - Wrong technique in product usage process [Unknown]
  - Acne [Unknown]
  - Swelling [Not Recovered/Not Resolved]
